FAERS Safety Report 5871644-5 (Version None)
Quarter: 2008Q3

REPORT INFORMATION
  Report Type: 
  Country: None (occurrence: None)
  Receive Date: 20080905
  Receipt Date: 20080826
  Transmission Date: 20090109
  Serious: Yes (Death, Hospitalization)
  Sender: FDA-Public Use
  Company Number: JP-ABBOTT-08P-087-0438503-00

PATIENT
  Age: 75 Year
  Sex: Male

DRUGS (4)
  1. LEUPROLIDE ACETATE [Suspect]
     Indication: PROSTATE CANCER STAGE I
     Route: 058
     Dates: start: 20060324, end: 20061221
  2. BICALUTAMIDE [Concomitant]
     Indication: PROSTATE CANCER STAGE I
     Route: 048
     Dates: end: 20060523
  3. PURSENNID [Concomitant]
     Indication: CONSTIPATION
     Route: 048
  4. NOVOLIN R [Concomitant]
     Indication: DIABETES MELLITUS
     Route: 058

REACTIONS (2)
  - MESOTHELIOMA MALIGNANT [None]
  - PLEURAL EFFUSION [None]
